FAERS Safety Report 9626088 (Version 1)
Quarter: 2013Q4

REPORT INFORMATION
  Report Type: Spontaneous
  Country: US (occurrence: None)
  Receive Date: 20131015
  Receipt Date: 20131015
  Transmission Date: 20140711
  Serious: Yes (Life-Threatening)
  Sender: FDA-Public Use
  Company Number: None

PATIENT
  Age: 79 Year
  Sex: Female
  Weight: 56.25 kg

DRUGS (1)
  1. DURAGESIC [Suspect]
     Indication: PAIN
     Dosage: 1 PATCH EVERY 3 DAYS, APPLIED AS MEDICATED PATCH TO SKIN
     Route: 061

REACTIONS (3)
  - Depression [None]
  - Decreased appetite [None]
  - Anxiety [None]
